FAERS Safety Report 6920108-6 (Version None)
Quarter: 2010Q3

REPORT INFORMATION
  Report Type: 
  Country: None (occurrence: None)
  Receive Date: 20100730
  Receipt Date: 20100318
  Transmission Date: 20110219
  Serious: Yes (Hospitalization)
  Sender: FDA-Public Use
  Company Number: OMPQ-PR-1002S-0096

PATIENT
  Age: 81 Year
  Sex: Male
  Weight: 72 kg

DRUGS (11)
  1. OMNIPAQUE 140 [Suspect]
     Indication: HEADACHE
     Dosage: 20 ML, SINGLE DOSE, I.T.
     Route: 037
     Dates: start: 20100209, end: 20100209
  2. OMNIPAQUE 140 [Suspect]
     Indication: INTRACRANIAL HYPOTENSION
     Dosage: 20 ML, SINGLE DOSE, I.T.
     Route: 037
     Dates: start: 20100209, end: 20100209
  3. CALCIUM CARBONATE (OSCAL) [Concomitant]
  4. CLOTRIMAZOLE [Concomitant]
  5. DIGOXIN [Concomitant]
  6. DOCUSATE SODIUM (COLACE) [Concomitant]
  7. ESOMEPRAZOLE MAGNESIUM (NEXIUM) [Concomitant]
  8. HUMULIN R [Concomitant]
  9. NOVOLIN R [Concomitant]
  10. SYNTHROID [Concomitant]
  11. COZAAR [Concomitant]

REACTIONS (2)
  - CONFUSIONAL STATE [None]
  - GRAND MAL CONVULSION [None]
